FAERS Safety Report 20145630 (Version 1)
Quarter: 2021Q4

REPORT INFORMATION
  Report Type: Spontaneous
  Country: US (occurrence: None)
  Receive Date: 20211202
  Receipt Date: 20211202
  Transmission Date: 20220303
  Serious: No
  Sender: FDA-Public Use
  Company Number: None

PATIENT

DRUGS (5)
  1. LEVOPHED [Suspect]
     Active Substance: NOREPINEPHRINE BITARTRATE
     Route: 042
  2. VERSED [Suspect]
     Active Substance: MIDAZOLAM HYDROCHLORIDE
  3. KETAMINE HYDROCHLORIDE [Suspect]
     Active Substance: KETAMINE HYDROCHLORIDE
  4. FENTANYL [Suspect]
     Active Substance: FENTANYL
     Route: 042
  5. ALBUMIN HUMAN [Suspect]
     Active Substance: ALBUMIN HUMAN

REACTIONS (5)
  - Victim of crime [None]
  - Legal problem [None]
  - Incorrect drug administration rate [None]
  - Transcription medication error [None]
  - Blood pressure decreased [None]
